FAERS Safety Report 10395116 (Version 1)
Quarter: 2014Q3

REPORT INFORMATION
  Report Type: Spontaneous
  Country: GB (occurrence: GB)
  Receive Date: 20140820
  Receipt Date: 20140820
  Transmission Date: 20150326
  Serious: Yes (Hospitalization, Disabling, Other)
  Sender: FDA-Public Use
  Company Number: GB-ELI_LILLY_AND_COMPANY-GB201408002487

PATIENT
  Age: 41 Year
  Sex: Female
  Weight: 76.2 kg

DRUGS (5)
  1. MIDAZOLAM [Suspect]
     Active Substance: MIDAZOLAM\MIDAZOLAM HYDROCHLORIDE
     Indication: MENTAL DISORDER
     Dosage: 50 MG, UNKNOWN
     Route: 048
     Dates: start: 20120103, end: 20120106
  2. QUETIAPINE [Suspect]
     Active Substance: QUETIAPINE
     Indication: MENTAL DISORDER
     Dosage: 800 MG, UNKNOWN
     Route: 048
     Dates: start: 20120104, end: 20120106
  3. CITALOPRAM HYDROBROMIDE. [Suspect]
     Active Substance: CITALOPRAM HYDROBROMIDE
     Indication: MENTAL DISORDER
     Dosage: 50 MG, UNK
     Route: 048
     Dates: start: 20120109, end: 20120313
  4. MIRTAZAPINE. [Concomitant]
     Active Substance: MIRTAZAPINE
     Dosage: UNK
  5. DULOXETINE HYDROCHLORIDE. [Suspect]
     Active Substance: DULOXETINE HYDROCHLORIDE
     Indication: MENTAL DISORDER
     Dosage: 60 MG, UNKNOWN
     Route: 048
     Dates: start: 20120105, end: 20120106

REACTIONS (2)
  - Documented hypersensitivity to administered drug [Unknown]
  - Neuropathy peripheral [Not Recovered/Not Resolved]
